FAERS Safety Report 6094267-4 (Version None)
Quarter: 2009Q1

REPORT INFORMATION
  Report Type: 
  Country: None (occurrence: None)
  Receive Date: 20090223
  Receipt Date: 20090211
  Transmission Date: 20090719
  Serious: Yes (Death)
  Sender: FDA-Public Use
  Company Number: SE-1168676

PATIENT
  Age: 80 Year
  Sex: Female

DRUGS (1)
  1. FLUORESCITE [Suspect]
     Indication: ANGIOGRAM RETINA
     Dosage: 2.5 ML, INTRAVENOUS BOLUS
     Route: 040
     Dates: start: 20081024, end: 20081024

REACTIONS (6)
  - CHEST PAIN [None]
  - CRYING [None]
  - DISCOMFORT [None]
  - MALAISE [None]
  - NAUSEA [None]
  - SYNCOPE [None]
